FAERS Safety Report 8491066-0 (Version None)
Quarter: 2012Q2

REPORT INFORMATION
  Report Type: 
  Country: None (occurrence: None)
  Receive Date: 20120627
  Receipt Date: 20120619
  Transmission Date: 20120825
  Serious: Yes (Other)
  Sender: FDA-Public Use
  Company Number: JPI-P-022134

PATIENT
  Age: 56 Year
  Sex: Female

DRUGS (4)
  1. CLOPIDOGREL [Concomitant]
  2. BLOOD THINNER [Concomitant]
  3. ASPIRIN [Concomitant]
  4. XYREM [Suspect]
     Indication: PRODUCT USED FOR UNKNOWN INDICATION
     Dosage: ORAL
     Route: 048
     Dates: start: 20061020

REACTIONS (1)
  - MYOCARDIAL INFARCTION [None]
